FAERS Safety Report 18582760 (Version 1)
Quarter: 2020Q4

REPORT INFORMATION
  Report Type: Spontaneous
  Country: JP (occurrence: JP)
  Receive Date: 20201205
  Receipt Date: 20201205
  Transmission Date: 20210114
  Serious: Yes (Other)
  Sender: FDA-Public Use
  Company Number: JP-UCBSA-2020049748

PATIENT
  Age: 75 Year
  Sex: Female

DRUGS (2)
  1. PEFICITINIB HYDROBROMIDE [Suspect]
     Active Substance: PEFICITINIB HYDROBROMIDE
     Indication: RHEUMATOID ARTHRITIS
     Dosage: 2XMONTHLY
     Route: 048
  2. CIMZIA [Suspect]
     Active Substance: CERTOLIZUMAB PEGOL
     Indication: RHEUMATOID ARTHRITIS
     Dosage: UNK
     Route: 058

REACTIONS (4)
  - Pain [Unknown]
  - Therapeutic response decreased [Unknown]
  - Meniere^s disease [Unknown]
  - C-reactive protein increased [Unknown]

NARRATIVE: CASE EVENT DATE: 202011
